FAERS Safety Report 8124653-X (Version None)
Quarter: 2012Q1

REPORT INFORMATION
  Report Type: 
  Country: None (occurrence: None)
  Receive Date: 20120209
  Receipt Date: 20120209
  Transmission Date: 20120608
  Serious: Yes (Life-Threatening, Hospitalization, Other)
  Sender: FDA-Public Use
  Company Number: None

PATIENT
  Age: 60 Year
  Sex: Female
  Weight: 103.41 kg

DRUGS (1)
  1. OMEPRAZOLE [Suspect]
     Indication: GASTROOESOPHAGEAL REFLUX DISEASE
     Dosage: 20.0 MG
     Route: 048
     Dates: start: 20020101, end: 20120207

REACTIONS (5)
  - PYREXIA [None]
  - DIVERTICULAR PERFORATION [None]
  - DIARRHOEA [None]
  - MUSCLE SPASMS [None]
  - CLOSTRIDIAL INFECTION [None]
